FAERS Safety Report 24577629 (Version 5)
Quarter: 2024Q4

REPORT INFORMATION
  Report Type: Spontaneous
  Country: US (occurrence: US)
  Receive Date: 20241104
  Receipt Date: 20241226
  Transmission Date: 20250115
  Serious: No
  Sender: PFIZER
  Company Number: US-PFIZER INC-PV202300144656

PATIENT
  Age: 69 Year
  Sex: Female
  Weight: 88.45 kg

DRUGS (1)
  1. IBRANCE [Suspect]
     Active Substance: PALBOCICLIB
     Indication: Breast cancer female
     Dosage: 125 MG, CYCLIC (DAILY DAYS 1-21 OUT OF 28 DAY CYCLE)
     Route: 048

REACTIONS (1)
  - Brain fog [Unknown]
